FAERS Safety Report 26134500 (Version 1)
Quarter: 2025Q4

REPORT INFORMATION
  Report Type: Report from Study
  Country: GB (occurrence: GB)
  Receive Date: 20251209
  Receipt Date: 20251209
  Transmission Date: 20260119
  Serious: Yes (Hospitalization)
  Sender: ABBVIE
  Company Number: GB-ABBVIE-6579018

PATIENT
  Age: 55 Year
  Sex: Male

DRUGS (1)
  1. RINVOQ [Suspect]
     Active Substance: UPADACITINIB
     Indication: Colitis ulcerative
     Dosage: RINVOQ 15MG MODIFIED-RELEASE TABLETS TAKE ONE DAILY.
     Route: 048
     Dates: start: 202504

REACTIONS (1)
  - Hospitalisation [Unknown]
